FAERS Safety Report 20154919 (Version 2)
Quarter: 2021Q4

REPORT INFORMATION
  Report Type: Report from Study
  Country: BG (occurrence: BG)
  Receive Date: 20211207
  Receipt Date: 20211228
  Transmission Date: 20220303
  Serious: Yes (Other)
  Sender: FDA-Public Use
  Company Number: BG-NOVARTISPH-NVSC2021BG277811

PATIENT
  Age: 13 Year
  Sex: Female
  Weight: 72 kg

DRUGS (1)
  1. GILENYA [Suspect]
     Active Substance: FINGOLIMOD HYDROCHLORIDE
     Indication: Multiple sclerosis
     Dosage: 1 DOSAGE FORM, QD
     Route: 048
     Dates: start: 20211201, end: 20211201

REACTIONS (1)
  - Sinus arrhythmia [Not Recovered/Not Resolved]

NARRATIVE: CASE EVENT DATE: 20211201
